FAERS Safety Report 25704452 (Version 1)
Quarter: 2025Q3

REPORT INFORMATION
  Report Type: Spontaneous
  Country: CA (occurrence: CA)
  Receive Date: 20250820
  Receipt Date: 20250820
  Transmission Date: 20251021
  Serious: Yes (Other)
  Sender: NOVARTIS
  Company Number: CA-002147023-NVSC2025CA127550

PATIENT
  Age: 82 Year
  Sex: Male

DRUGS (2)
  1. ENTRESTO [Suspect]
     Active Substance: SACUBITRIL\VALSARTAN
     Indication: Product used for unknown indication
     Route: 065
  2. VYNDAMAX [Suspect]
     Active Substance: TAFAMIDIS
     Indication: Cardiomyopathy
     Dosage: 61 MG, QD
     Route: 048
     Dates: start: 20240523

REACTIONS (8)
  - Cardiac failure chronic [Unknown]
  - Dizziness postural [Not Recovered/Not Resolved]
  - Ventricular dysfunction [Unknown]
  - Condition aggravated [Unknown]
  - Disease progression [Unknown]
  - Poor prognosis [Unknown]
  - Fall [Unknown]
  - Hypotension [Unknown]
